FAERS Safety Report 13161901 (Version 1)
Quarter: 2017Q1

REPORT INFORMATION
  Report Type: Spontaneous
  Country: US (occurrence: US)
  Receive Date: 20170130
  Receipt Date: 20170130
  Transmission Date: 20170428
  Serious: No
  Sender: FDA-Public Use
  Company Number: US-AMGEN-USASP2017011740

PATIENT
  Age: 53 Year
  Sex: Female

DRUGS (8)
  1. MUCINEX [Suspect]
     Active Substance: GUAIFENESIN
     Indication: RESPIRATORY TRACT CONGESTION
  2. MONTELUKAST [Concomitant]
     Active Substance: MONTELUKAST SODIUM
     Indication: SEASONAL ALLERGY
  3. BABY ASPIRIN [Concomitant]
     Active Substance: ASPIRIN
     Dosage: 81 MG, UNK
  4. MONTELUKAST [Concomitant]
     Active Substance: MONTELUKAST SODIUM
     Indication: ALLERGY TO ANIMAL
     Dosage: 10 MG, UNK
  5. ENBREL [Suspect]
     Active Substance: ETANERCEPT
     Dosage: 50 MG, QWK
     Route: 065
     Dates: start: 2016
  6. ENBREL [Suspect]
     Active Substance: ETANERCEPT
     Indication: RHEUMATOID ARTHRITIS
     Dosage: 50 MG, QWK
     Route: 065
     Dates: end: 201610
  7. MUCINEX [Suspect]
     Active Substance: GUAIFENESIN
     Indication: PRODUCTIVE COUGH
  8. MUCINEX [Suspect]
     Active Substance: GUAIFENESIN
     Indication: NASOPHARYNGITIS
     Dosage: UNK
     Route: 065

REACTIONS (27)
  - Muscle spasms [Unknown]
  - Pain in extremity [Unknown]
  - Oropharyngeal pain [Not Recovered/Not Resolved]
  - Muscular weakness [Unknown]
  - Productive cough [Unknown]
  - Contusion [Unknown]
  - Pain [Not Recovered/Not Resolved]
  - Respiratory tract congestion [Recovered/Resolved]
  - Pain in jaw [Unknown]
  - Musculoskeletal stiffness [Unknown]
  - Dyspnoea [Unknown]
  - Surgical failure [Unknown]
  - Incorrect product storage [Unknown]
  - Tarsal tunnel syndrome [Unknown]
  - Arthralgia [Unknown]
  - Ear discomfort [Unknown]
  - Nasopharyngitis [Recovered/Resolved]
  - Varicose vein [Unknown]
  - Musculoskeletal chest pain [Unknown]
  - Chest discomfort [Unknown]
  - Chondrolysis [Unknown]
  - Diarrhoea [Unknown]
  - Sputum discoloured [Not Recovered/Not Resolved]
  - Musculoskeletal pain [Unknown]
  - Insomnia [Not Recovered/Not Resolved]
  - Ear pain [Unknown]
  - Injection site pain [Unknown]

NARRATIVE: CASE EVENT DATE: 2016
